FAERS Safety Report 6688759-4 (Version None)
Quarter: 2010Q2

REPORT INFORMATION
  Report Type: 
  Country: None (occurrence: None)
  Receive Date: 20100420
  Receipt Date: 20100412
  Transmission Date: 20101027
  Serious: Yes (Death)
  Sender: FDA-Public Use
  Company Number: B0648283A

PATIENT
  Age: 43 Year
  Sex: Female

DRUGS (1)
  1. AMOXICILLIN AND CLAVULANATE POTASSIUM [Suspect]
     Indication: PROPHYLAXIS
     Dosage: 1.2G FOUR TIMES PER DAY
     Route: 042

REACTIONS (12)
  - BAND NEUTROPHIL COUNT INCREASED [None]
  - DEATH [None]
  - DRUG INEFFECTIVE [None]
  - DRUG RESISTANCE [None]
  - FIBRIN D DIMER INCREASED [None]
  - HYPOTENSION [None]
  - METABOLIC ACIDOSIS [None]
  - MULTI-ORGAN FAILURE [None]
  - RENAL FAILURE ACUTE [None]
  - SEPTIC SHOCK [None]
  - TACHYCARDIA [None]
  - THROMBOCYTOPENIA [None]
